FAERS Safety Report 15579986 (Version 1)
Quarter: 2018Q4

REPORT INFORMATION
  Report Type: Spontaneous
  Country: CN (occurrence: CN)
  Receive Date: 20181102
  Receipt Date: 20181102
  Transmission Date: 20190205
  Serious: Yes (Hospitalization)
  Sender: FDA-Public Use
  Company Number: CN-SA-2018SA301369

PATIENT
  Age: 74 Year
  Sex: Male

DRUGS (2)
  1. LANTUS [Suspect]
     Active Substance: INSULIN GLARGINE
     Indication: HYPERGLYCAEMIA
     Dosage: 6 U, QD
     Route: 058
     Dates: start: 20180709, end: 20180920
  2. GAN SHU LIN N [Concomitant]
     Indication: HYPERGLYCAEMIA
     Dosage: 13 IU, BID
     Route: 058
     Dates: start: 20180709, end: 20180920

REACTIONS (1)
  - Hypoglycaemic coma [Recovering/Resolving]

NARRATIVE: CASE EVENT DATE: 20180920
